FAERS Safety Report 13412506 (Version 2)
Quarter: 2017Q4

REPORT INFORMATION
  Report Type: Spontaneous
  Country: US (occurrence: US)
  Receive Date: 20170406
  Receipt Date: 20171123
  Transmission Date: 20180320
  Serious: No
  Sender: FDA-Public Use
  Company Number: US-JNJFOC-20170309322

PATIENT
  Age: 17 Year
  Sex: Male

DRUGS (48)
  1. RISPERDAL [Suspect]
     Active Substance: RISPERIDONE
     Indication: NEUROLEPTIC MALIGNANT SYNDROME
     Dosage: 1.25 MG THE AM AND 1 AT QHS
     Route: 048
     Dates: start: 20050106
  2. RISPERDAL [Suspect]
     Active Substance: RISPERIDONE
     Indication: NEUROLEPTIC MALIGNANT SYNDROME
     Route: 048
     Dates: start: 20060123, end: 20081024
  3. RISPERDAL M-TAB [Suspect]
     Active Substance: RISPERIDONE
     Indication: NEUROLEPTIC MALIGNANT SYNDROME
     Route: 048
     Dates: start: 20060323
  4. RISPERDAL [Suspect]
     Active Substance: RISPERIDONE
     Indication: BIPOLAR DISORDER
     Dosage: VARYING DOSE OF 0.25 MG TO 1 MG
     Route: 048
     Dates: start: 20041229, end: 20060216
  5. RISPERDAL [Suspect]
     Active Substance: RISPERIDONE
     Indication: BIPOLAR DISORDER
     Dosage: VARYING DOSE OF 1 MG TO 4 MG
     Route: 048
     Dates: start: 20050830, end: 20070313
  6. RISPERDAL [Suspect]
     Active Substance: RISPERIDONE
     Indication: BIPOLAR DISORDER
     Dosage: VARYING DOSE OF 1 MG TO 4 MG
     Route: 048
     Dates: start: 20051121, end: 20080822
  7. RISPERDAL [Suspect]
     Active Substance: RISPERIDONE
     Indication: SCHIZOPHRENIA
     Dosage: 1 1/2 IN THE MORNING AND 1 AT PM
     Route: 048
     Dates: start: 20030507
  8. RISPERDAL [Suspect]
     Active Substance: RISPERIDONE
     Indication: SCHIZOPHRENIA
     Dosage: IN VARYING DOSE OF 0.25, 01 AND 1.25 MG
     Route: 048
     Dates: start: 19990518, end: 20051121
  9. RISPERDAL [Suspect]
     Active Substance: RISPERIDONE
     Indication: SCHIZOPHRENIA
     Route: 048
     Dates: start: 19990518, end: 20041221
  10. RISPERDAL [Suspect]
     Active Substance: RISPERIDONE
     Indication: SCHIZOPHRENIA
     Dosage: VARYING DOSE OF 1 MG TO 4 MG
     Route: 048
     Dates: start: 20051121, end: 20080822
  11. RISPERDAL [Suspect]
     Active Substance: RISPERIDONE
     Indication: NEUROLEPTIC MALIGNANT SYNDROME
     Dosage: 1 MG 4 MG
     Route: 048
     Dates: start: 20010814
  12. RISPERDAL [Suspect]
     Active Substance: RISPERIDONE
     Indication: NEUROLEPTIC MALIGNANT SYNDROME
     Dosage: VARYING DOSE OF 1 MG TO 2 MG
     Route: 048
     Dates: start: 20040604, end: 20101212
  13. RISPERDAL [Suspect]
     Active Substance: RISPERIDONE
     Indication: SCHIZOPHRENIA
     Route: 048
     Dates: start: 20020130, end: 20050318
  14. RISPERDAL [Suspect]
     Active Substance: RISPERIDONE
     Indication: SCHIZOPHRENIA
     Route: 048
     Dates: start: 20020528
  15. RISPERDAL [Suspect]
     Active Substance: RISPERIDONE
     Indication: NEUROLEPTIC MALIGNANT SYNDROME
     Route: 048
     Dates: start: 20020130, end: 20050318
  16. RISPERDAL [Suspect]
     Active Substance: RISPERIDONE
     Indication: NEUROLEPTIC MALIGNANT SYNDROME
     Dosage: VARYING DOSE OF 0.25 MG TO 1 MG
     Route: 048
     Dates: start: 20041229, end: 20060216
  17. RISPERDAL M-TAB [Suspect]
     Active Substance: RISPERIDONE
     Indication: SCHIZOPHRENIA
     Route: 048
     Dates: start: 20060323
  18. RISPERDAL [Suspect]
     Active Substance: RISPERIDONE
     Indication: BIPOLAR DISORDER
     Dosage: IN VARYING DOSE OF 0.25, 01 AND 1.25 MG
     Route: 048
     Dates: start: 19990518, end: 20051121
  19. RISPERDAL [Suspect]
     Active Substance: RISPERIDONE
     Indication: SCHIZOPHRENIA
     Dosage: 1.25 MG THE AM AND 1 AT QHS
     Route: 048
     Dates: start: 20050106
  20. RISPERDAL [Suspect]
     Active Substance: RISPERIDONE
     Indication: SCHIZOPHRENIA
     Dosage: VARYING DOSE OF 1 MG TO 2 MG
     Route: 048
     Dates: start: 20040604, end: 20101212
  21. RISPERDAL [Suspect]
     Active Substance: RISPERIDONE
     Indication: SCHIZOPHRENIA
     Dosage: VARYING DOSE OF 1 MG TO 4 MG
     Route: 048
     Dates: start: 20050830, end: 20070313
  22. RISPERDAL [Suspect]
     Active Substance: RISPERIDONE
     Indication: NEUROLEPTIC MALIGNANT SYNDROME
     Dosage: VARYING DOSE OF 1 MG TO 4 MG
     Route: 048
     Dates: start: 20050830, end: 20070313
  23. RISPERDAL [Suspect]
     Active Substance: RISPERIDONE
     Indication: NEUROLEPTIC MALIGNANT SYNDROME
     Dosage: IN VARYING DOSE OF 0.25, 01 AND 1.25 MG
     Route: 048
     Dates: start: 19990518, end: 20051121
  24. RISPERDAL [Suspect]
     Active Substance: RISPERIDONE
     Indication: BIPOLAR DISORDER
     Dosage: 1 MG 4 MG
     Route: 048
     Dates: start: 20010814
  25. RISPERDAL [Suspect]
     Active Substance: RISPERIDONE
     Indication: BIPOLAR DISORDER
     Route: 048
     Dates: start: 20060123, end: 20081024
  26. RISPERDAL [Suspect]
     Active Substance: RISPERIDONE
     Indication: NEUROLEPTIC MALIGNANT SYNDROME
     Dosage: 1 1/2 IN THE MORNING AND 1 AT PM
     Route: 048
     Dates: start: 20030507
  27. RISPERDAL [Suspect]
     Active Substance: RISPERIDONE
     Indication: NEUROLEPTIC MALIGNANT SYNDROME
     Route: 048
     Dates: start: 19990518, end: 20041221
  28. RISPERIDONE. [Suspect]
     Active Substance: RISPERIDONE
     Indication: SCHIZOPHRENIA
     Dosage: IN VARYING DOSE OF 02 AND 04 MG
     Route: 065
     Dates: start: 20081117, end: 20100308
  29. RISPERIDONE. [Suspect]
     Active Substance: RISPERIDONE
     Indication: NEUROLEPTIC MALIGNANT SYNDROME
     Dosage: IN VARYING DOSE OF 02 AND 04 MG
     Route: 065
     Dates: start: 20081117, end: 20100308
  30. RISPERDAL [Suspect]
     Active Substance: RISPERIDONE
     Indication: BIPOLAR DISORDER
     Dosage: VARYING DOSE OF 1 MG TO 2 MG
     Route: 048
     Dates: start: 20040604, end: 20101212
  31. RISPERDAL [Suspect]
     Active Substance: RISPERIDONE
     Indication: SCHIZOPHRENIA
     Dosage: 1 MG 4 MG
     Route: 048
     Dates: start: 20010814
  32. RISPERIDONE. [Suspect]
     Active Substance: RISPERIDONE
     Indication: BIPOLAR DISORDER
     Route: 065
     Dates: start: 20040513
  33. RISPERIDONE. [Suspect]
     Active Substance: RISPERIDONE
     Indication: BIPOLAR DISORDER
     Dosage: IN VARYING DOSE OF 02 AND 04 MG
     Route: 065
     Dates: start: 20081117, end: 20100308
  34. RISPERDAL [Suspect]
     Active Substance: RISPERIDONE
     Indication: BIPOLAR DISORDER
     Route: 048
     Dates: start: 20020528
  35. RISPERDAL [Suspect]
     Active Substance: RISPERIDONE
     Indication: BIPOLAR DISORDER
     Route: 048
     Dates: start: 19990518, end: 20041221
  36. RISPERDAL [Suspect]
     Active Substance: RISPERIDONE
     Indication: SCHIZOPHRENIA
     Route: 048
     Dates: start: 20020930
  37. RISPERDAL [Suspect]
     Active Substance: RISPERIDONE
     Indication: NEUROLEPTIC MALIGNANT SYNDROME
     Route: 048
     Dates: start: 20020930
  38. RISPERDAL [Suspect]
     Active Substance: RISPERIDONE
     Indication: NEUROLEPTIC MALIGNANT SYNDROME
     Dosage: VARYING DOSE OF 1 MG TO 4 MG
     Route: 048
     Dates: start: 20051121, end: 20080822
  39. RISPERIDONE. [Suspect]
     Active Substance: RISPERIDONE
     Indication: SCHIZOPHRENIA
     Route: 065
     Dates: start: 20040513
  40. RISPERIDONE. [Suspect]
     Active Substance: RISPERIDONE
     Indication: NEUROLEPTIC MALIGNANT SYNDROME
     Route: 065
     Dates: start: 20040513
  41. RISPERDAL M-TAB [Suspect]
     Active Substance: RISPERIDONE
     Indication: BIPOLAR DISORDER
     Route: 048
     Dates: start: 20060323
  42. RISPERDAL [Suspect]
     Active Substance: RISPERIDONE
     Indication: BIPOLAR DISORDER
     Dosage: 1 1/2 IN THE MORNING AND 1 AT PM
     Route: 048
     Dates: start: 20030507
  43. RISPERDAL [Suspect]
     Active Substance: RISPERIDONE
     Indication: BIPOLAR DISORDER
     Route: 048
     Dates: start: 20020930
  44. RISPERDAL [Suspect]
     Active Substance: RISPERIDONE
     Indication: BIPOLAR DISORDER
     Dosage: 1.25 MG THE AM AND 1 AT QHS
     Route: 048
     Dates: start: 20050106
  45. RISPERDAL [Suspect]
     Active Substance: RISPERIDONE
     Indication: NEUROLEPTIC MALIGNANT SYNDROME
     Route: 048
     Dates: start: 20020528
  46. RISPERDAL [Suspect]
     Active Substance: RISPERIDONE
     Indication: BIPOLAR DISORDER
     Route: 048
     Dates: start: 20020130, end: 20050318
  47. RISPERDAL [Suspect]
     Active Substance: RISPERIDONE
     Indication: SCHIZOPHRENIA
     Dosage: VARYING DOSE OF 0.25 MG TO 1 MG
     Route: 048
     Dates: start: 20041229, end: 20060216
  48. RISPERDAL [Suspect]
     Active Substance: RISPERIDONE
     Indication: SCHIZOPHRENIA
     Route: 048
     Dates: start: 20060123, end: 20081024

REACTIONS (3)
  - Gynaecomastia [Unknown]
  - Tremor [Unknown]
  - Emotional disorder [Unknown]

NARRATIVE: CASE EVENT DATE: 20100216
